FAERS Safety Report 8257087-8 (Version None)
Quarter: 2012Q2

REPORT INFORMATION
  Report Type: 
  Country: None (occurrence: None)
  Receive Date: 20120403
  Receipt Date: 20120330
  Transmission Date: 20120825
  Serious: Yes (Hospitalization, Other)
  Sender: FDA-Public Use
  Company Number: US-AMGEN-USASP2012014617

PATIENT
  Age: 26 Year
  Sex: Female
  Weight: 20.862 kg

DRUGS (11)
  1. ARANESP [Suspect]
     Dosage: 60 MUG, UNK
     Route: 058
     Dates: start: 20090101, end: 20120124
  2. ARANESP [Suspect]
     Indication: ANAEMIA
     Dosage: 60 MUG, UNK
     Dates: start: 20111230, end: 20120101
  3. ARANESP [Suspect]
     Dosage: 60 MUG, UNK
     Dates: start: 20111129
  4. ARANESP [Suspect]
     Dosage: 60 MUG, UNK
     Dates: start: 20111111
  5. ALLOPURINOL [Concomitant]
     Dosage: UNK
  6. ARANESP [Suspect]
     Dosage: 100 MUG, UNK
     Dates: start: 20110722
  7. ARANESP [Suspect]
     Dosage: 100 MUG, UNK
     Dates: start: 20110624
  8. ARANESP [Suspect]
     Dosage: 60 MUG, UNK
     Dates: start: 20111219
  9. ARANESP [Suspect]
     Dosage: 100 MUG, UNK
     Dates: start: 20110919
  10. MYCOPHENOLATE MOFETIL [Suspect]
     Dosage: UNK
     Dates: start: 20111121
  11. RITUXIMAB [Concomitant]
     Dosage: UNK

REACTIONS (8)
  - LEUKOCYTOCLASTIC VASCULITIS [None]
  - PERIORBITAL OEDEMA [None]
  - DYSPNOEA [None]
  - APLASIA PURE RED CELL [None]
  - THERAPEUTIC RESPONSE DECREASED [None]
  - NEUROPATHY PERIPHERAL [None]
  - ANAEMIA [None]
  - CARDIAC FAILURE CONGESTIVE [None]
